FAERS Safety Report 7893566-0 (Version None)
Quarter: 2011Q4

REPORT INFORMATION
  Report Type: 
  Country: None (occurrence: None)
  Receive Date: 20111104
  Receipt Date: 20111027
  Transmission Date: 20120403
  Serious: Yes (Hospitalization)
  Sender: FDA-Public Use
  Company Number: CA-JNJFOC-20111013486

PATIENT
  Sex: Male

DRUGS (3)
  1. REMICADE [Suspect]
     Indication: RHEUMATOID ARTHRITIS
     Route: 042
     Dates: start: 20071218
  2. METHOTREXATE [Concomitant]
     Route: 058
  3. REMICADE [Suspect]
     Dosage: 26TH INFUSION
     Route: 042
     Dates: start: 20111027

REACTIONS (1)
  - HIP ARTHROPLASTY [None]
